FAERS Safety Report 5702803-X (Version None)
Quarter: 2008Q2

REPORT INFORMATION
  Report Type: 
  Country: None (occurrence: None)
  Receive Date: 20080411
  Receipt Date: 20080402
  Transmission Date: 20081010
  Serious: Yes (Other)
  Sender: FDA-Public Use
  Company Number: US-ELI_LILLY_AND_COMPANY-US200801004303

PATIENT
  Sex: Female
  Weight: 94.331 kg

DRUGS (11)
  1. BYETTA [Suspect]
     Dosage: 5 UG, 2/D
     Route: 058
     Dates: start: 20051001, end: 20051101
  2. BYETTA [Suspect]
     Dosage: 10 UG, 2/D
     Route: 058
     Dates: start: 20051101, end: 20080111
  3. LIPITOR [Concomitant]
     Indication: HYPERLIPIDAEMIA
     Dosage: UNK, UNKNOWN
     Route: 048
     Dates: end: 20080111
  4. METFORMIN HCL [Concomitant]
     Dosage: 500 MG, EACH MORNING
     Route: 048
     Dates: end: 20080111
  5. METFORMIN HCL [Concomitant]
     Dosage: 1000 MG, EACH EVENING
     Route: 048
     Dates: end: 20080111
  6. TRICOR [Concomitant]
     Indication: HYPERLIPIDAEMIA
     Dosage: UNK, UNKNOWN
     Dates: end: 20080111
  7. TRIAMTERENE [Concomitant]
     Indication: CORONARY ARTERY DISEASE
     Dosage: UNK, UNKNOWN
     Dates: end: 20080111
  8. ZETIA [Concomitant]
     Indication: CORONARY ARTERY DISEASE
     Dosage: UNK, UNKNOWN
     Dates: end: 20080111
  9. LISINOPRIL [Concomitant]
     Indication: CORONARY ARTERY DISEASE
     Dosage: 10 MG, UNKNOWN
     Dates: end: 20080111
  10. AMLODIPINE BESYLATE [Concomitant]
     Indication: CORONARY ARTERY DISEASE
     Dosage: 320 MG, UNKNOWN
     Dates: end: 20080111
  11. VALSARTAN [Concomitant]
     Indication: CORONARY ARTERY DISEASE
     Dosage: 320 MG, UNKNOWN
     Dates: end: 20080111

REACTIONS (3)
  - LIVER FUNCTION TEST ABNORMAL [None]
  - PANCREATITIS [None]
  - WEIGHT DECREASED [None]
